FAERS Safety Report 7918215 (Version 60)
Quarter: 2014Q1

REPORT INFORMATION
  Report Type: Report from Study
  Country: CA (occurrence: CA)
  Receive Date: 20110428
  Receipt Date: 20140331
  Transmission Date: 20141002
  Serious: Yes (Death, Hospitalization, Other)
  Sender: FDA-Public Use
  Company Number: PHHY2011CA13914

PATIENT
  Age: 79 Year
  Sex: Male

DRUGS (17)
  1. SANDOSTATIN LAR [Suspect]
     Indication: NEUROENDOCRINE CARCINOMA
     Dosage: 30 MG, QMO
     Route: 030
     Dates: start: 20110120
  2. SANDOSTATIN LAR [Suspect]
     Dosage: 30 MG EVERY 4 WEEKS
     Route: 030
  3. SANDOSTATIN LAR [Suspect]
     Dosage: 30 MG, EVERY 2 WEEKS
     Route: 030
  4. SANDOSTATIN LAR [Suspect]
     Dosage: 30 MG, QMO
     Route: 030
  5. SANDOSTATIN LAR [Suspect]
     Dosage: 30 MG, EVERY 4 WEEKS
     Route: 030
  6. SANDOSTATIN LAR [Suspect]
     Dosage: 20 MG, EVERY 2 WEEKS
     Route: 030
  7. SANDOSTATIN LAR [Suspect]
     Dosage: 30 MG, EVERY 28 DAYS
     Route: 030
  8. SANDOSTATIN LAR [Suspect]
     Dosage: 30 MG, EVERY 2 WEEKS
     Route: 030
  9. SANDOSTATIN LAR [Suspect]
     Dosage: 30 MG, EVERY 14 DAYS
     Route: 030
  10. SANDOSTATIN LAR [Suspect]
     Dosage: 30 MG, EVERY 2 WEEKS
     Route: 030
  11. SANDOSTATIN LAR [Suspect]
     Dosage: 30 MG, EVERY 2 WEEKS
     Route: 030
     Dates: end: 20140304
  12. NORVASC [Concomitant]
     Indication: BLOOD PRESSURE ABNORMAL
     Dosage: UNK UKN, UNK
  13. ATENOLOL [Concomitant]
     Indication: BLOOD PRESSURE ABNORMAL
     Dosage: UNK UKN, UNK
     Dates: start: 201103
  14. HYDROCHLOROTHIAZIDE [Concomitant]
     Indication: BLOOD PRESSURE ABNORMAL
     Dosage: UNK UKN, UNK
  15. TYLENOL EXTRA STRENGTH [Concomitant]
     Dosage: UNK UKN, QID
  16. LAXATIVES [Concomitant]
     Dosage: UNK UKN, UNK
  17. NIACIN [Concomitant]
     Dosage: UNK UKN, UNK

REACTIONS (47)
  - Death [Fatal]
  - Intervertebral disc degeneration [Unknown]
  - Back pain [Unknown]
  - Lung disorder [Unknown]
  - Obstructive airways disorder [Unknown]
  - Pleural effusion [Unknown]
  - Compression fracture [Unknown]
  - Blood pressure increased [Unknown]
  - Heart rate decreased [Unknown]
  - Heart rate irregular [Unknown]
  - Palpitations [Recovering/Resolving]
  - Fatigue [Recovering/Resolving]
  - Malignant neoplasm progression [Not Recovered/Not Resolved]
  - Bone disorder [Unknown]
  - Muscular weakness [Unknown]
  - Blood pressure fluctuation [Unknown]
  - Influenza like illness [Unknown]
  - Pain [Unknown]
  - Swelling [Unknown]
  - Gastrooesophageal reflux disease [Unknown]
  - Throat tightness [Unknown]
  - Arthralgia [Unknown]
  - Musculoskeletal stiffness [Unknown]
  - Oedema peripheral [Unknown]
  - Urine analysis abnormal [Unknown]
  - Anxiety [Unknown]
  - Myalgia [Recovered/Resolved]
  - Blister [Unknown]
  - Pain in extremity [Unknown]
  - Nervousness [Unknown]
  - Blood pressure decreased [Unknown]
  - Skin ulcer [Unknown]
  - Lower respiratory tract infection [Unknown]
  - Breath sounds abnormal [Unknown]
  - Dry skin [Unknown]
  - Skin exfoliation [Unknown]
  - Agitation [Unknown]
  - Decreased appetite [Unknown]
  - Rash pruritic [Unknown]
  - Faeces soft [Unknown]
  - Rash [Unknown]
  - Tachycardia [Unknown]
  - Nausea [Unknown]
  - Asthenia [Unknown]
  - Dyspepsia [Unknown]
  - Dizziness [Recovered/Resolved]
  - Dyspnoea [Unknown]
